FAERS Safety Report 20296887 (Version 5)
Quarter: 2025Q4

REPORT INFORMATION
  Report Type: Report from Study
  Country: KR (occurrence: KR)
  Receive Date: 20220105
  Receipt Date: 20251205
  Transmission Date: 20260117
  Serious: Yes (Death)
  Sender: ABBVIE
  Company Number: KR-ABBVIE-22K-090-4219576-00

PATIENT
  Age: 85 Year
  Sex: Female
  Weight: 64 kg

DRUGS (17)
  1. VENCLEXTA [Suspect]
     Active Substance: VENETOCLAX
     Indication: Acute myeloid leukaemia
     Dosage: 10 MILLIGRAM
     Route: 048
     Dates: start: 20211209, end: 20211209
  2. VENCLEXTA [Suspect]
     Active Substance: VENETOCLAX
     Indication: Acute myeloid leukaemia
     Dosage: 20 MILLIGRAM
     Route: 048
     Dates: start: 20211210, end: 20211210
  3. VENCLEXTA [Suspect]
     Active Substance: VENETOCLAX
     Indication: Acute myeloid leukaemia
     Dosage: 50 MILLIGRAM
     Route: 048
     Dates: start: 20211211, end: 20211211
  4. VENCLEXTA [Suspect]
     Active Substance: VENETOCLAX
     Indication: Acute myeloid leukaemia
     Dosage: 100 MILLIGRAM
     Route: 048
     Dates: start: 20211212, end: 20211230
  5. VIDAZA [Concomitant]
     Active Substance: AZACITIDINE
     Indication: Acute myeloid leukaemia
     Route: 058
     Dates: start: 20211209, end: 20211215
  6. ALLOPURINOL [Concomitant]
     Active Substance: ALLOPURINOL
     Indication: Prophylaxis
     Route: 048
     Dates: start: 20211209, end: 20211222
  7. ZOYLEX [Concomitant]
     Indication: Antiviral prophylaxis
     Route: 042
     Dates: start: 20211209, end: 20211216
  8. RAMOSETRON HYDROCHLORIDE [Concomitant]
     Active Substance: RAMOSETRON HYDROCHLORIDE
     Indication: Prophylaxis of nausea and vomiting
     Route: 042
     Dates: start: 20211209, end: 20211215
  9. NOXAFIL [Concomitant]
     Active Substance: POSACONAZOLE
     Indication: Antifungal prophylaxis
     Route: 048
     Dates: start: 20211209, end: 20211222
  10. MAXIPIME [Concomitant]
     Active Substance: CEFEPIME HYDROCHLORIDE
     Indication: Antibiotic prophylaxis
     Route: 042
     Dates: start: 20211209, end: 20211210
  11. PENIRAMIN [Concomitant]
     Indication: Allergy prophylaxis
     Route: 042
     Dates: start: 20211209, end: 20211230
  12. ATROVENT [Concomitant]
     Active Substance: IPRATROPIUM BROMIDE
     Indication: Product used for unknown indication
     Dosage: 500MCG/2ML
     Route: 055
     Dates: start: 20211214, end: 20211215
  13. SINIL-M [Concomitant]
     Indication: Constipation
     Route: 048
     Dates: start: 20211209, end: 20211215
  14. DIOPASS [Concomitant]
     Indication: Hypertension
     Route: 048
     Dates: start: 20211209, end: 20211221
  15. VENTOLIN [Concomitant]
     Active Substance: ALBUTEROL SULFATE
     Indication: Dyspnoea
     Route: 055
     Dates: start: 20211209, end: 20211215
  16. NOVORAPID [Concomitant]
     Active Substance: INSULIN ASPART
     Indication: Diabetes mellitus
     Dosage: 100UNIT/ML
     Route: 042
     Dates: start: 20211213, end: 20211223
  17. COTRIM [Concomitant]
     Active Substance: SULFAMETHOXAZOLE\TRIMETHOPRIM
     Indication: Antibiotic prophylaxis
     Route: 042
     Dates: start: 20211211, end: 20211222

REACTIONS (1)
  - Pneumonia bacterial [Fatal]

NARRATIVE: CASE EVENT DATE: 20211222
